FAERS Safety Report 5620440-2 (Version None)
Quarter: 2008Q1

REPORT INFORMATION
  Report Type: 
  Country: None (occurrence: None)
  Receive Date: 20080208
  Receipt Date: 20080124
  Transmission Date: 20080703
  Serious: Yes (Death)
  Sender: FDA-Public Use
  Company Number: BE-BRISTOL-MYERS SQUIBB COMPANY-14069942

PATIENT
  Age: 63 Year
  Sex: Male

DRUGS (1)
  1. LYSODREN [Suspect]

REACTIONS (2)
  - DEATH [None]
  - DRUG LEVEL ABOVE THERAPEUTIC [None]
